FAERS Safety Report 4648449-6 (Version None)
Quarter: 2005Q2

REPORT INFORMATION
  Report Type: 
  Country: None (occurrence: None)
  Receive Date: 20050429
  Receipt Date: 20050307
  Transmission Date: 20051028
  Serious: Yes (Hospitalization)
  Sender: FDA-Public Use
  Company Number: PHHO2005US04120

PATIENT
  Age: 53 Year
  Sex: Male
  Weight: 117 kg

DRUGS (13)
  1. NEORAL [Suspect]
     Indication: RENAL TRANSPLANT
     Dosage: 225 MG, BID
     Route: 048
     Dates: start: 20050112
  2. NEORAL [Suspect]
     Dosage: 200 MG, QD
     Route: 048
     Dates: end: 20050418
  3. MYFORTIC [Suspect]
     Dosage: 720 MG, BID
     Route: 048
     Dates: start: 20050112
  4. MYFORTIC [Suspect]
     Dosage: 360 MG, BID
     Route: 048
  5. COUMADIN [Concomitant]
  6. COREG [Concomitant]
  7. ASPIRIN [Concomitant]
  8. COLCHICINE [Concomitant]
  9. PHOSLO [Concomitant]
  10. NEPHROCAPS [Concomitant]
  11. WARFARIN SODIUM [Concomitant]
  12. PROTONIX [Concomitant]
  13. AMBIEN [Concomitant]

REACTIONS (12)
  - ABDOMINAL PAIN [None]
  - BLOOD BILIRUBIN INCREASED [None]
  - BLOOD PRESSURE DECREASED [None]
  - CARDIAC FAILURE CHRONIC [None]
  - CARDIAC FAILURE CONGESTIVE [None]
  - CHEST DISCOMFORT [None]
  - CONSTIPATION [None]
  - ELECTROCARDIOGRAM ABNORMAL [None]
  - NAUSEA [None]
  - VENTRICULAR HYPERTROPHY [None]
  - VOMITING [None]
  - WEIGHT INCREASED [None]
